FAERS Safety Report 9254800 (Version 1)
Quarter: 2013Q2

REPORT INFORMATION
  Report Type: Spontaneous
  Country: US (occurrence: US)
  Receive Date: 20130425
  Receipt Date: 20130425
  Transmission Date: 20140414
  Serious: No
  Sender: FDA-Public Use
  Company Number: US-PFIZER INC-2013127111

PATIENT
  Sex: Female

DRUGS (8)
  1. ADVIL [Suspect]
     Indication: SINUS HEADACHE
     Dosage: UNK
  2. ADVIL [Suspect]
     Indication: ARTHRALGIA
  3. ASPIRIN [Suspect]
     Indication: SINUS HEADACHE
     Dosage: UNK
  4. ASPIRIN [Suspect]
     Indication: ARTHRALGIA
  5. ASPIRIN ^BAYER^ [Suspect]
     Indication: SINUS HEADACHE
     Dosage: UNK
  6. ASPIRIN ^BAYER^ [Suspect]
     Indication: ARTHRALGIA
  7. ALEVE [Suspect]
     Indication: SINUS HEADACHE
     Dosage: UNK
  8. ALEVE [Suspect]
     Indication: ARTHRALGIA

REACTIONS (1)
  - Drug effect decreased [Unknown]
